FAERS Safety Report 7776303-X (Version None)
Quarter: 2011Q3

REPORT INFORMATION
  Report Type: 
  Country: None (occurrence: None)
  Receive Date: 20110921
  Receipt Date: 20110921
  Transmission Date: 20111222
  Serious: Yes (Hospitalization)
  Sender: FDA-Public Use
  Company Number: None

PATIENT
  Age: 63 Year
  Sex: Female

DRUGS (4)
  1. DEXAMETHASONE [Concomitant]
  2. DIAZEPAM [Concomitant]
  3. REVLIMID [Suspect]
     Indication: MULTIPLE MYELOMA
     Dosage: REVLIMID 25MG DAILY ORAL
     Route: 048
     Dates: start: 20110628
  4. FLUTICASONE PROPIONATE [Concomitant]

REACTIONS (2)
  - PNEUMONIA [None]
  - SEPSIS [None]
